FAERS Safety Report 6402058-7 (Version None)
Quarter: 2009Q4

REPORT INFORMATION
  Report Type: 
  Country: None (occurrence: None)
  Receive Date: 20091015
  Receipt Date: 20091008
  Transmission Date: 20100525
  Serious: Yes (Other)
  Sender: FDA-Public Use
  Company Number: FR-BRISTOL-MYERS SQUIBB COMPANY-14763973

PATIENT
  Age: 54 Year
  Sex: Male
  Weight: 78 kg

DRUGS (3)
  1. ERBITUX [Suspect]
     Indication: HYPOPHARYNGEAL CANCER
     Dosage: THEN TAKEN 250MG/M2
     Route: 042
     Dates: start: 20081201, end: 20090201
  2. CARBOPLATIN [Suspect]
     Indication: HYPOPHARYNGEAL CANCER
     Dosage: 1 DF = AUC25; RECEIVED 3 COURSES
     Route: 042
     Dates: start: 20081201, end: 20090201
  3. FLUOROURACIL [Suspect]
     Indication: HYPOPHARYNGEAL CANCER
     Dosage: SOULTION FOR INJECTION
     Route: 042
     Dates: start: 20081201, end: 20090201

REACTIONS (3)
  - GAIT DISTURBANCE [None]
  - NYSTAGMUS [None]
  - VERTIGO [None]
